FAERS Safety Report 15082664 (Version 2)
Quarter: 2018Q3

REPORT INFORMATION
  Report Type: Spontaneous
  Country: SN (occurrence: SN)
  Receive Date: 20180628
  Receipt Date: 20180913
  Transmission Date: 20181010
  Serious: Yes (Other)
  Sender: FDA-Public Use
  Company Number: SN-PFIZER INC-2018256657

PATIENT
  Age: 70 Year
  Sex: Female

DRUGS (5)
  1. ATORVASTATIN CALCIUM. [Suspect]
     Active Substance: ATORVASTATIN CALCIUM
     Indication: HYPERCHOLESTEROLAEMIA
     Dosage: 10 MG, 1X/DAY
  2. ALDACTONE [Concomitant]
     Active Substance: SPIRONOLACTONE
     Indication: HYPERCHOLESTEROLAEMIA
     Dosage: 75 MG, 1X/DAY
  3. NICARDIPINE [Concomitant]
     Active Substance: NICARDIPINE
     Indication: HYPERCHOLESTEROLAEMIA
     Dosage: 50 MG, 2X/DAY (SUSTAINED RELEASE)
  4. VALSARTAN. [Concomitant]
     Active Substance: VALSARTAN
     Indication: HYPERTENSION
     Dosage: 80 MG, 2X/DAY (FOR MORE THAN 10 YEARS)
  5. HYDROCHLOROTHIAZIDE. [Concomitant]
     Active Substance: HYDROCHLOROTHIAZIDE
     Indication: HYPERCHOLESTEROLAEMIA
     Dosage: 25 MG, 1X/DAY

REACTIONS (5)
  - Myositis [Recovered/Resolved]
  - Thrombocytopenic purpura [Recovered/Resolved]
  - Myopathy [Recovering/Resolving]
  - Thrombocytopenia [Recovering/Resolving]
  - Hepatitis [Recovering/Resolving]
